FAERS Safety Report 7638101-7 (Version None)
Quarter: 2011Q3

REPORT INFORMATION
  Report Type: 
  Country: None (occurrence: None)
  Receive Date: 20110727
  Receipt Date: 20110718
  Transmission Date: 20111222
  Serious: Yes (Hospitalization)
  Sender: FDA-Public Use
  Company Number: US-JNJFOC-20110708899

PATIENT
  Sex: Female
  Weight: 60.33 kg

DRUGS (9)
  1. MIRTAZAPINE [Concomitant]
     Indication: STRESS
     Route: 048
  2. ZOLPIDEM [Concomitant]
     Indication: SLEEP DISORDER
     Route: 048
  3. FENTANYL-100 [Suspect]
     Indication: RHEUMATOID ARTHRITIS
     Route: 062
     Dates: end: 20110531
  4. FENTANYL-100 [Suspect]
     Indication: RHEUMATOID ARTHRITIS
     Route: 062
     Dates: start: 20110531, end: 20110701
  5. HYDROCHLOROTHIAZIDE [Concomitant]
     Indication: HYPERTENSION
     Route: 048
  6. RANITIDINE [Concomitant]
     Indication: DYSPEPSIA
     Route: 048
  7. ASPIRIN [Concomitant]
     Indication: CARDIAC DISORDER
     Route: 048
  8. SIMVASTATIN [Concomitant]
     Indication: BLOOD CHOLESTEROL INCREASED
     Route: 048
  9. DIOVAN [Concomitant]
     Indication: HYPERTENSION
     Route: 048

REACTIONS (8)
  - CHEST PAIN [None]
  - NECK PAIN [None]
  - MALAISE [None]
  - GASTROINTESTINAL DISORDER [None]
  - PAIN [None]
  - DYSPNOEA [None]
  - POLYP [None]
  - DYSPHAGIA [None]
